FAERS Safety Report 6301990-2 (Version None)
Quarter: 2009Q3

REPORT INFORMATION
  Report Type: 
  Country: None (occurrence: None)
  Receive Date: 20090807
  Receipt Date: 20090804
  Transmission Date: 20100115
  Serious: Yes (Hospitalization, Other)
  Sender: FDA-Public Use
  Company Number: US-TEVA-204808USA

PATIENT
  Age: 71 Year
  Sex: Male

DRUGS (1)
  1. PROPOFOL [Suspect]
     Indication: ANAESTHESIA
     Route: 042
     Dates: start: 20090504

REACTIONS (2)
  - BODY TEMPERATURE INCREASED [None]
  - SEPTIC SHOCK [None]
